FAERS Safety Report 6063079-X (Version None)
Quarter: 2009Q1

REPORT INFORMATION
  Report Type: 
  Country: None (occurrence: None)
  Receive Date: 20090203
  Receipt Date: 20090202
  Transmission Date: 20090719
  Serious: Yes (Death, Other)
  Sender: FDA-Public Use
  Company Number: PHHY2009JP03269

PATIENT
  Age: 25 Year
  Sex: Male

DRUGS (7)
  1. CYCLOSPORINE [Suspect]
     Indication: UNRELATED DONOR BONE MARROW TRANSPLANTATION THERAPY
  2. CYCLOSPORINE [Suspect]
     Indication: PROPHYLAXIS AGAINST GRAFT VERSUS HOST DISEASE
  3. METHOTREXATE [Suspect]
     Indication: UNRELATED DONOR BONE MARROW TRANSPLANTATION THERAPY
  4. METHOTREXATE [Suspect]
     Indication: PROPHYLAXIS AGAINST GRAFT VERSUS HOST DISEASE
  5. IRRADIATION [Concomitant]
  6. CYTARABINE [Concomitant]
  7. CYCLOPHOSPHAMIDE [Concomitant]

REACTIONS (8)
  - ABDOMINAL PAIN LOWER [None]
  - ADENOVIRAL HAEMORRHAGIC CYSTITIS [None]
  - ALTERED STATE OF CONSCIOUSNESS [None]
  - GRAFT VERSUS HOST DISEASE [None]
  - HAEMATURIA [None]
  - MULTI-ORGAN FAILURE [None]
  - RENAL IMPAIRMENT [None]
  - RESIDUAL URINE [None]
